FAERS Safety Report 12369417 (Version 1)
Quarter: 2016Q2

REPORT INFORMATION
  Report Type: Spontaneous
  Country: US (occurrence: None)
  Receive Date: 20160513
  Receipt Date: 20160513
  Transmission Date: 20160815
  Serious: No
  Sender: FDA-Public Use
  Company Number: None

PATIENT
  Sex: Female

DRUGS (1)
  1. AMARYL [Suspect]
     Active Substance: GLIMEPIRIDE

REACTIONS (3)
  - Drug effect decreased [None]
  - Glycosylated haemoglobin increased [None]
  - Hypoglycaemia [None]
